FAERS Safety Report 4730290-7 (Version None)
Quarter: 2005Q3

REPORT INFORMATION
  Report Type: 
  Country: None (occurrence: None)
  Receive Date: 20050729
  Receipt Date: 20050726
  Transmission Date: 20060218
  Serious: Yes (Other)
  Sender: FDA-Public Use
  Company Number: 005277

PATIENT
  Age: 72 Year
  Sex: Female
  Weight: 52.6 kg

DRUGS (3)
  1. TAMOXIFEN CITRATE [Suspect]
     Indication: BREAST CANCER
     Dosage: 20.00 MG, QD, ORAL
     Route: 048
     Dates: start: 20030901
  2. HYDROCHLOROTHIAZIDE [Concomitant]
  3. FOSAMAX ONCE WEEKLY [Concomitant]
     Indication: BREAST CANCER

REACTIONS (1)
  - MACULAR DEGENERATION [None]
